FAERS Safety Report 21872155 (Version 1)
Quarter: 2023Q1

REPORT INFORMATION
  Report Type: Spontaneous
  Country: US (occurrence: None)
  Receive Date: 20230113
  Receipt Date: 20230113
  Transmission Date: 20230418
  Serious: No
  Sender: FDA-Public Use
  Company Number: None

PATIENT
  Age: 59 Year
  Sex: Male

DRUGS (1)
  1. CAPECITABINE [Suspect]
     Active Substance: CAPECITABINE
     Dosage: FREQUENCY : TWICE A DAY;?
     Route: 048
     Dates: start: 202209

REACTIONS (7)
  - Off label use [None]
  - Lumbar vertebral fracture [None]
  - Pain in extremity [None]
  - Neoplasm malignant [None]
  - Constipation [None]
  - Rectal haemorrhage [None]
  - Procedural pain [None]

NARRATIVE: CASE EVENT DATE: 20221218
